FAERS Safety Report 9478953 (Version 1)
Quarter: 2013Q3

REPORT INFORMATION
  Report Type: Spontaneous
  Country: IN (occurrence: None)
  Receive Date: 20130822
  Receipt Date: 20130822
  Transmission Date: 20140515
  Serious: Yes (Life-Threatening)
  Sender: FDA-Public Use
  Company Number: 1851877

PATIENT
  Age: 3 Year
  Sex: Male
  Weight: 11 kg

DRUGS (3)
  1. DEXMEDETOMIDINE HYDROCHLORIDE [Suspect]
     Indication: PRODUCT USED FOR UNKNOWN INDICATION
     Route: 042
  2. CEFTRIAXONE [Concomitant]
  3. DEXAMETHASONE [Concomitant]

REACTIONS (6)
  - Bradycardia [None]
  - Bradypnoea [None]
  - Hypotension [None]
  - Accidental overdose [None]
  - Miosis [None]
  - Loss of consciousness [None]
